FAERS Safety Report 10093584 (Version 1)
Quarter: 2014Q2

REPORT INFORMATION
  Report Type: Spontaneous
  Country: US (occurrence: US)
  Receive Date: 20140421
  Receipt Date: 20140421
  Transmission Date: 20141212
  Serious: No
  Sender: FDA-Public Use
  Company Number: US-SANOFI-AVENTIS-2013SA079026

PATIENT
  Sex: Female

DRUGS (3)
  1. ALLEGRA [Suspect]
     Indication: PRURITUS
     Route: 048
     Dates: start: 20130801
  2. LEVOTHYROXINE [Suspect]
  3. ALL OTHER THERAPEUTIC PRODUCTS [Suspect]

REACTIONS (2)
  - Sleep disorder [Not Recovered/Not Resolved]
  - Therapeutic response decreased [Not Recovered/Not Resolved]
